FAERS Safety Report 9037819 (Version 1)
Quarter: 2013Q1

REPORT INFORMATION
  Report Type: Spontaneous
  Country: US (occurrence: US)
  Receive Date: 20130129
  Receipt Date: 20130129
  Transmission Date: 20140127
  Serious: Yes (Death, Hospitalization, Other)
  Sender: FDA-Public Use
  Company Number: US-TEVA-382725USA

PATIENT
  Sex: Male

DRUGS (4)
  1. NAPROXEN [Suspect]
     Indication: BACK PAIN
  2. HEPARIN [Concomitant]
  3. LISINOPRIL [Concomitant]
  4. PREDNISONE [Concomitant]

REACTIONS (10)
  - Sepsis [Fatal]
  - Abdominal wall disorder [Fatal]
  - Haemorrhage [Unknown]
  - Anaphylactic reaction [Unknown]
  - Renal failure acute [Unknown]
  - Mouth haemorrhage [Unknown]
  - Haemoptysis [Unknown]
  - Abdominal pain upper [Unknown]
  - Dyspnoea [Unknown]
  - White blood cell count increased [Unknown]
